FAERS Safety Report 11626731 (Version 1)
Quarter: 2015Q4

REPORT INFORMATION
  Report Type: Report from Study
  Country: AU (occurrence: AU)
  Receive Date: 20151013
  Receipt Date: 20151013
  Transmission Date: 20160304
  Serious: Yes (Death, Life-Threatening, Hospitalization)
  Sender: FDA-Public Use
  Company Number: AU-ABBVIE-14P-008-1239721-00

PATIENT
  Age: 72 Year
  Sex: Male

DRUGS (6)
  1. CLONAZEPAM. [Concomitant]
     Active Substance: CLONAZEPAM
     Indication: ANXIETY
     Dosage: TOTAL DAILY DOSE: 0.75-1 MG. DAILY, NOCTE
     Route: 048
     Dates: start: 20130411
  2. DUODOPA [Suspect]
     Active Substance: CARBIDOPA\LEVODOPA
     Indication: PARKINSON^S DISEASE
     Dosage: SEE DOSING IN HISTORY NARRATIVE
     Route: 050
     Dates: start: 20130321
  3. PAROXETINE [Concomitant]
     Active Substance: PAROXETINE\PAROXETINE HYDROCHLORIDE
     Indication: ANXIETY
     Route: 048
     Dates: start: 20130328
  4. SINEMET [Concomitant]
     Active Substance: CARBIDOPA\LEVODOPA
     Indication: PRODUCT USED FOR UNKNOWN INDICATION
  5. ASPIRIN. [Concomitant]
     Active Substance: ASPIRIN
     Indication: PRODUCT USED FOR UNKNOWN INDICATION
  6. KEPPRA [Concomitant]
     Active Substance: LEVETIRACETAM
     Indication: PRODUCT USED FOR UNKNOWN INDICATION

REACTIONS (7)
  - Syncope [Not Recovered/Not Resolved]
  - Urinary tract infection [Unknown]
  - Urinary retention [Unknown]
  - Seizure [Fatal]
  - Parkinson^s disease [Fatal]
  - Cerebral autosomal dominant arteriopathy with subcortical infarcts and leukoencephalopathy [Fatal]
  - Subdural haemorrhage [Fatal]

NARRATIVE: CASE EVENT DATE: 20131127
